FAERS Safety Report 23171627 (Version 8)
Quarter: 2024Q3

REPORT INFORMATION
  Report Type: Report from Study
  Country: US (occurrence: US)
  Receive Date: 20231110
  Receipt Date: 20240920
  Transmission Date: 20241017
  Serious: Yes (Hospitalization, Other)
  Sender: TAKEDA
  Company Number: US-TAKEDA-2023TUS108500

PATIENT
  Age: 68 Year
  Sex: Female
  Weight: 82 kg

DRUGS (3)
  1. VEDOLIZUMAB [Suspect]
     Active Substance: VEDOLIZUMAB
     Indication: Colitis ulcerative
     Dosage: 300 MILLIGRAM
     Route: 042
  2. MESALAMINE [Suspect]
     Active Substance: MESALAMINE
     Indication: Product used for unknown indication
     Dosage: UNK
     Route: 065
  3. PREDNISONE [Concomitant]
     Active Substance: PREDNISONE
     Dosage: UNK

REACTIONS (18)
  - Rectal haemorrhage [Not Recovered/Not Resolved]
  - Breast pain [Recovered/Resolved]
  - Large intestine polyp [Unknown]
  - Therapy partial responder [Unknown]
  - Head titubation [Unknown]
  - Tremor [Unknown]
  - Poor venous access [Recovered/Resolved]
  - Inappropriate schedule of product administration [Recovered/Resolved]
  - Proctalgia [Not Recovered/Not Resolved]
  - Weight increased [Recovered/Resolved]
  - Rectal prolapse [Not Recovered/Not Resolved]
  - Malaise [Not Recovered/Not Resolved]
  - Somnolence [Not Recovered/Not Resolved]
  - Abdominal pain [Not Recovered/Not Resolved]
  - Vomiting [Unknown]
  - Constipation [Not Recovered/Not Resolved]
  - Back pain [Unknown]
  - Pain in extremity [Unknown]

NARRATIVE: CASE EVENT DATE: 20231201
